FAERS Safety Report 19619003 (Version 1)
Quarter: 2021Q3

REPORT INFORMATION
  Report Type: Spontaneous
  Country: US (occurrence: US)
  Receive Date: 20210727
  Receipt Date: 20210727
  Transmission Date: 20211014
  Serious: No
  Sender: FDA-Public Use
  Company Number: US-ROCHE-2799681

PATIENT
  Age: 37 Year
  Sex: Female

DRUGS (1)
  1. XELODA [Suspect]
     Active Substance: CAPECITABINE
     Indication: BREAST CANCER
     Route: 048

REACTIONS (9)
  - Motor dysfunction [Unknown]
  - Constipation [Unknown]
  - Paraesthesia [Unknown]
  - Palmar-plantar erythrodysaesthesia syndrome [Unknown]
  - Fatigue [Unknown]
  - Epistaxis [Unknown]
  - Weight increased [Unknown]
  - Fall [Unknown]
  - Hot flush [Unknown]

NARRATIVE: CASE EVENT DATE: 20210301
